FAERS Safety Report 4336318-0 (Version None)
Quarter: 2004Q2

REPORT INFORMATION
  Report Type: 
  Country: None (occurrence: None)
  Receive Date: 20040407
  Receipt Date: 20040323
  Transmission Date: 20050107
  Serious: Yes (Hospitalization, Other)
  Sender: FDA-Public Use
  Company Number: USA040362898

PATIENT
  Age: 74 Year
  Sex: Male

DRUGS (1)
  1. PROZAC [Suspect]

REACTIONS (4)
  - ABNORMAL BEHAVIOUR [None]
  - AGGRESSION [None]
  - COLON CANCER [None]
  - WEIGHT DECREASED [None]
